FAERS Safety Report 7565536-3 (Version None)
Quarter: 2011Q2

REPORT INFORMATION
  Report Type: 
  Country: None (occurrence: None)
  Receive Date: 20110623
  Receipt Date: 20110616
  Transmission Date: 20111010
  Serious: Yes (Hospitalization, Other)
  Sender: FDA-Public Use
  Company Number: FR-BRISTOL-MYERS SQUIBB COMPANY-15764780

PATIENT
  Age: 87 Year
  Sex: Female

DRUGS (3)
  1. AMOXICILLIN TRIHYDRATE [Suspect]
     Indication: BRONCHITIS
     Route: 048
     Dates: start: 20110422, end: 20110428
  2. LASIX [Suspect]
     Route: 048
     Dates: start: 20110301, end: 20110428
  3. GLUCOPHAGE [Suspect]
     Indication: TYPE 2 DIABETES MELLITUS
     Route: 048
     Dates: end: 20110428

REACTIONS (4)
  - BRONCHITIS [None]
  - URINARY TRACT INFECTION [None]
  - LACTIC ACIDOSIS [None]
  - RENAL FAILURE ACUTE [None]
